FAERS Safety Report 11374395 (Version 2)
Quarter: 2015Q4

REPORT INFORMATION
  Report Type: Report from Study
  Country: BR (occurrence: BR)
  Receive Date: 20150813
  Receipt Date: 20151113
  Transmission Date: 20160304
  Serious: Yes (Other)
  Sender: FDA-Public Use
  Company Number: PHHY2015BR096574

PATIENT
  Age: 49 Year
  Sex: Male
  Weight: 78 kg

DRUGS (3)
  1. CORDAREX [Concomitant]
     Active Substance: AMIODARONE
     Indication: HYPERTENSION
     Dosage: 5 MG, QD (1 TABLET)
     Route: 048
     Dates: start: 201408
  2. COBAVITAL [Concomitant]
     Indication: APPETITE DISORDER
     Dosage: 4 MG, BID (1 TABLET)
     Route: 048
  3. DIOVAN HCT [Suspect]
     Active Substance: HYDROCHLOROTHIAZIDE\VALSARTAN
     Indication: HYPERTENSION
     Dosage: (VALSARTAN 320 MG AND HYDROCHLOROTHIAZIDE 12.5 MG), QD
     Route: 048
     Dates: start: 201408

REACTIONS (6)
  - Cough [Unknown]
  - Malaise [Not Recovered/Not Resolved]
  - Depression [Recovering/Resolving]
  - Pulmonary fibrosis [Recovering/Resolving]
  - Emphysema [Recovering/Resolving]
  - Weight decreased [Recovering/Resolving]

NARRATIVE: CASE EVENT DATE: 201507
